FAERS Safety Report 7539849-5 (Version None)
Quarter: 2011Q2

REPORT INFORMATION
  Report Type: 
  Country: None (occurrence: None)
  Receive Date: 20110609
  Receipt Date: 20110609
  Transmission Date: 20111010
  Serious: Yes (Death)
  Sender: FDA-Public Use
  Company Number: None

PATIENT
  Sex: Male

DRUGS (1)
  1. ACETAMINOPHEN AND HYDROCODONE BITARTRATE [Suspect]
     Indication: PROCEDURAL PAIN
     Dosage: 15ML Q 4 HOURS PO
     Route: 048
     Dates: start: 20100610, end: 20100612

REACTIONS (5)
  - INCREASED UPPER AIRWAY SECRETION [None]
  - RESPIRATORY ARREST [None]
  - OVERDOSE [None]
  - SLUGGISHNESS [None]
  - UNRESPONSIVE TO STIMULI [None]
